FAERS Safety Report 4956012-2 (Version None)
Quarter: 2006Q1

REPORT INFORMATION
  Report Type: 
  Country: None (occurrence: None)
  Receive Date: 20060328
  Receipt Date: 20060323
  Transmission Date: 20060701
  Serious: Yes (Hospitalization, Other)
  Sender: FDA-Public Use
  Company Number: US-MERCK-0603USA04076

PATIENT
  Age: 43 Year
  Sex: Male
  Weight: 105 kg

DRUGS (4)
  1. VIOXX [Suspect]
     Indication: PAIN MANAGEMENT
     Route: 048
     Dates: start: 20011221, end: 20020121
  2. PLAVIX [Concomitant]
     Route: 065
     Dates: start: 20010404
  3. PLAVIX [Concomitant]
     Route: 065
     Dates: start: 20010405, end: 20010406
  4. ASPIRIN [Concomitant]
     Route: 065
     Dates: start: 19990628

REACTIONS (8)
  - CARDIAC ARREST [None]
  - CHEST PAIN [None]
  - COMA [None]
  - DYSPNOEA [None]
  - FLANK PAIN [None]
  - MYOCARDIAL INFARCTION [None]
  - PAIN IN EXTREMITY [None]
  - RIB FRACTURE [None]
